FAERS Safety Report 17715372 (Version 5)
Quarter: 2021Q1

REPORT INFORMATION
  Report Type: Report from Study
  Country: GB (occurrence: GB)
  Receive Date: 20200427
  Receipt Date: 20210128
  Transmission Date: 20210419
  Serious: No
  Sender: FDA-Public Use
  Company Number: NVSC2020GB112823

PATIENT
  Sex: Female

DRUGS (2)
  1. PARACETAMOL [Concomitant]
     Active Substance: ACETAMINOPHEN
     Indication: PRODUCT USED FOR UNKNOWN INDICATION
     Dosage: UNK
     Route: 065
  2. ERELZI [Suspect]
     Active Substance: ETANERCEPT-SZZS
     Indication: RHEUMATOID ARTHRITIS
     Dosage: 50 MG, QW
     Route: 058
     Dates: start: 20191028

REACTIONS (15)
  - Back pain [Not Recovered/Not Resolved]
  - Anosmia [Unknown]
  - SARS-CoV-2 test positive [Unknown]
  - Injection site bruising [Recovering/Resolving]
  - Vomiting [Unknown]
  - Pain [Recovering/Resolving]
  - Ageusia [Unknown]
  - Nausea [Unknown]
  - Intervertebral disc protrusion [Unknown]
  - Sleep disorder [Unknown]
  - Stress [Unknown]
  - Hyperventilation [Unknown]
  - Depressed mood [Recovering/Resolving]
  - Anxiety [Unknown]
  - Device issue [Unknown]
